FAERS Safety Report 8158938-8 (Version None)
Quarter: 2012Q1

REPORT INFORMATION
  Report Type: 
  Country: None (occurrence: None)
  Receive Date: 20120217
  Receipt Date: 20120202
  Transmission Date: 20120608
  Serious: Yes (Other)
  Sender: FDA-Public Use
  Company Number: DSJ-2012-02046

PATIENT
  Age: 7 Decade
  Sex: Male

DRUGS (2)
  1. METFORMIN HCL [Suspect]
     Indication: DIABETES MELLITUS
     Dosage: 3400 MG, PER ORAL
     Route: 048
     Dates: start: 20110101, end: 20110101
  2. AMLODIPINE BESYLATE AND OLMESARTAN MEDOXOMIL [Suspect]
     Indication: HYPERTENSION
     Dosage: 40/10 MG (1 IN 1 D), PER ORAL
     Route: 048
     Dates: start: 20110101, end: 20120101

REACTIONS (8)
  - POLYURIA [None]
  - OEDEMA PERIPHERAL [None]
  - POLYDIPSIA [None]
  - ASTHENIA [None]
  - HYPERGLYCAEMIA [None]
  - FATIGUE [None]
  - MALAISE [None]
  - VISUAL IMPAIRMENT [None]
